FAERS Safety Report 13367822 (Version 1)
Quarter: 2017Q1

REPORT INFORMATION
  Report Type: Spontaneous
  Country: US (occurrence: US)
  Receive Date: 20170324
  Receipt Date: 20170324
  Transmission Date: 20170429
  Serious: Yes (Hospitalization, Other)
  Sender: FDA-Public Use
  Company Number: US-AMGEN-USASP2017042788

PATIENT
  Age: 73 Year
  Sex: Female

DRUGS (2)
  1. ENBREL [Suspect]
     Active Substance: ETANERCEPT
     Indication: PSORIATIC ARTHROPATHY
     Dosage: 50 MG, 2 TIMES/WK
     Route: 065
  2. ENBREL [Suspect]
     Active Substance: ETANERCEPT
     Dosage: 25 MG, 2 TIMES/WK
     Route: 065

REACTIONS (9)
  - Drug effect decreased [Unknown]
  - Injection site discomfort [Unknown]
  - Mobility decreased [Unknown]
  - Grunting [Unknown]
  - Off label use [Unknown]
  - Postoperative wound infection [Not Recovered/Not Resolved]
  - Injection site pain [Unknown]
  - Basal cell carcinoma [Unknown]
  - Visual impairment [Unknown]

NARRATIVE: CASE EVENT DATE: 201703
